FAERS Safety Report 6633582-X (Version None)
Quarter: 2010Q1

REPORT INFORMATION
  Report Type: 
  Country: None (occurrence: None)
  Receive Date: 20100312
  Receipt Date: 20091130
  Transmission Date: 20100710
  Serious: No
  Sender: FDA-Public Use
  Company Number: US-ABBOTT-09P-163-0612759-00

PATIENT
  Age: 65 Year
  Sex: Male

DRUGS (2)
  1. ERYTHROMYCIN [Suspect]
     Indication: NASOPHARYNGITIS
     Dosage: UNKNOWN DOSE
     Dates: start: 20070101, end: 20070101
  2. ERYTHROMYCIN [Suspect]
     Indication: INFLUENZA

REACTIONS (2)
  - DIARRHOEA [None]
  - FAECAL INCONTINENCE [None]
